FAERS Safety Report 6385368-1 (Version None)
Quarter: 2009Q4

REPORT INFORMATION
  Report Type: 
  Country: None (occurrence: None)
  Receive Date: 20091002
  Receipt Date: 20090121
  Transmission Date: 20100525
  Serious: No
  Sender: FDA-Public Use
  Company Number: US-ASTRAZENECA-2008UW17984

PATIENT
  Age: 77 Year
  Sex: Female
  Weight: 61.2 kg

DRUGS (8)
  1. ARIMIDEX [Suspect]
     Indication: BREAST CANCER FEMALE
     Route: 048
     Dates: start: 20080801
  2. NORVASC [Concomitant]
  3. METFORMIN [Concomitant]
  4. LOVASTATIN [Concomitant]
  5. HCTZX [Concomitant]
  6. CA+ [Concomitant]
  7. VIT. D AND C [Concomitant]
  8. PRILOSEC [Concomitant]
     Route: 048

REACTIONS (3)
  - BLOOD GLUCOSE INCREASED [None]
  - CONSTIPATION [None]
  - INSOMNIA [None]
